FAERS Safety Report 24592676 (Version 1)
Quarter: 2024Q4

REPORT INFORMATION
  Report Type: Spontaneous
  Country: HR (occurrence: HR)
  Receive Date: 20241108
  Receipt Date: 20241108
  Transmission Date: 20250114
  Serious: Yes (Other)
  Sender: TEVA
  Company Number: HR-TEVA-VS-3261055

PATIENT
  Sex: Female

DRUGS (4)
  1. VENLAFAXINE HYDROCHLORIDE [Suspect]
     Active Substance: VENLAFAXINE HYDROCHLORIDE
     Indication: Product used for unknown indication
     Route: 065
     Dates: start: 202409
  2. VENLAFAXINE HYDROCHLORIDE [Suspect]
     Active Substance: VENLAFAXINE HYDROCHLORIDE
     Indication: Product used for unknown indication
     Route: 065
     Dates: start: 202410
  3. SULPIRIDE [Concomitant]
     Active Substance: SULPIRIDE
     Indication: Product used for unknown indication
     Route: 065
  4. ALPRAZOLAM [Concomitant]
     Active Substance: ALPRAZOLAM
     Indication: Product used for unknown indication
     Route: 065

REACTIONS (5)
  - Cerebrovascular accident [Recovered/Resolved]
  - Blood pressure increased [Unknown]
  - Bipolar disorder [Unknown]
  - Heart rate increased [Unknown]
  - Hot flush [Unknown]

NARRATIVE: CASE EVENT DATE: 20240101
